FAERS Safety Report 26161409 (Version 1)
Quarter: 2025Q4

REPORT INFORMATION
  Report Type: Spontaneous
  Country: EU (occurrence: EU)
  Receive Date: 20251216
  Receipt Date: 20251216
  Transmission Date: 20260117
  Serious: Yes (Death, Other)
  Sender: AUROBINDO
  Company Number: EU-AEMPS-1797839

PATIENT
  Sex: Female

DRUGS (2)
  1. TRAMADOL [Interacting]
     Active Substance: TRAMADOL
     Indication: Pain
     Dosage: UNK
     Route: 061
  2. FENTANYL [Interacting]
     Active Substance: FENTANYL
     Indication: Pain
     Dosage: UNK

REACTIONS (1)
  - Large intestinal obstruction [Fatal]

NARRATIVE: CASE EVENT DATE: 20251017
